FAERS Safety Report 7983436-1 (Version None)
Quarter: 2011Q4

REPORT INFORMATION
  Report Type: 
  Country: None (occurrence: None)
  Receive Date: 20111215
  Receipt Date: 20111213
  Transmission Date: 20120403
  Serious: Yes (Other)
  Sender: FDA-Public Use
  Company Number: US-BAYER-2011-024115

PATIENT
  Age: 58 Year
  Sex: Female

DRUGS (6)
  1. CYMBALTA [Concomitant]
  2. CONTRAST MEDIA [Concomitant]
     Indication: NUCLEAR MAGNETIC RESONANCE IMAGING
     Route: 042
  3. BETASERON [Suspect]
     Dosage: 8 MIU, QOD
     Route: 058
     Dates: start: 20110919
  4. BACLOFEN [Concomitant]
  5. CORTICOSTEROIDS [Concomitant]
  6. BETASERON [Suspect]
     Indication: MULTIPLE SCLEROSIS
     Dosage: 8 MIU QOD
     Dates: start: 20100920, end: 20110819

REACTIONS (11)
  - BEDRIDDEN [None]
  - UNEVALUABLE EVENT [None]
  - ABDOMINAL PAIN [None]
  - MULTIPLE SCLEROSIS RELAPSE [None]
  - DISABILITY [None]
  - LOSS OF CONSCIOUSNESS [None]
  - PAIN IN EXTREMITY [None]
  - DIPLOPIA [None]
  - PARAESTHESIA [None]
  - URINARY TRACT INFECTION [None]
  - DISORIENTATION [None]
